FAERS Safety Report 10626943 (Version 1)
Quarter: 2014Q4

REPORT INFORMATION
  Report Type: Spontaneous
  Country: US (occurrence: US)
  Receive Date: 20141204
  Receipt Date: 20141204
  Transmission Date: 20150529
  Serious: No
  Sender: FDA-Public Use
  Company Number: US-PFIZER INC-2014332968

PATIENT
  Age: 62 Year
  Sex: Female
  Weight: 157 kg

DRUGS (12)
  1. NEURONTIN [Suspect]
     Active Substance: GABAPENTIN
     Dosage: 200 MG, 3X/DAY
  2. LEVOXYL [Suspect]
     Active Substance: LEVOTHYROXINE SODIUM
     Dosage: 200 MG, 1X/DAY (IN AFTERNOON)
  3. LYRICA [Suspect]
     Active Substance: PREGABALIN
     Indication: PAIN IN EXTREMITY
  4. LYRICA [Suspect]
     Active Substance: PREGABALIN
     Indication: GAIT DISTURBANCE
  5. MOTRIN [Concomitant]
     Active Substance: IBUPROFEN
     Dosage: 800 MG, 1X/DAY (BEDTIME)
  6. NEURONTIN [Suspect]
     Active Substance: GABAPENTIN
     Indication: LIMB DISCOMFORT
     Dosage: 100 MG, 3X/DAY
  7. LEVOXYL [Suspect]
     Active Substance: LEVOTHYROXINE SODIUM
     Indication: HYPERTHYROIDISM
     Dosage: 75 MG, UNK
  8. LYRICA [Suspect]
     Active Substance: PREGABALIN
     Indication: LIMB DISCOMFORT
     Dosage: 100 MG, 2X/DAY (ONCE IN MORNING AND ONCE AT NIGHT)
  9. LYRICA [Suspect]
     Active Substance: PREGABALIN
     Indication: BONE PAIN
  10. MOTRIN [Concomitant]
     Active Substance: IBUPROFEN
     Dosage: 800 MG, EVERY 6 HRS
  11. VITAMIN D [Concomitant]
     Active Substance: CHOLECALCIFEROL
     Indication: VITAMIN D DEFICIENCY
     Dosage: 1 DF, WEEKLY
  12. SKELAXIN [Suspect]
     Active Substance: METAXALONE
     Indication: MUSCLE SPASMS
     Dosage: 800 MG, AS NEEDED

REACTIONS (1)
  - Neuropathy peripheral [Unknown]
